FAERS Safety Report 13009463 (Version 1)
Quarter: 2016Q4

REPORT INFORMATION
  Report Type: Spontaneous
  Country: US (occurrence: US)
  Receive Date: 20161208
  Receipt Date: 20161208
  Transmission Date: 20170207
  Serious: No
  Sender: FDA-Public Use
  Company Number: US-PERRIGO-16US018665

PATIENT
  Age: 47 Year
  Sex: Male
  Weight: 94.79 kg

DRUGS (1)
  1. MINOXIDIL. [Suspect]
     Active Substance: MINOXIDIL
     Indication: ALOPECIA
     Dosage: 1 ML, QD TO BID
     Route: 061
     Dates: start: 201605

REACTIONS (2)
  - Inappropriate schedule of drug administration [Unknown]
  - Expired product administered [Unknown]

NARRATIVE: CASE EVENT DATE: 201605
